FAERS Safety Report 4707802-2 (Version None)
Quarter: 2005Q2

REPORT INFORMATION
  Report Type: 
  Country: None (occurrence: None)
  Receive Date: 20050629
  Receipt Date: 20050314
  Transmission Date: 20051028
  Serious: No
  Sender: FDA-Public Use
  Company Number: 05P-163-0293934-00

PATIENT
  Age: 64 Year
  Sex: Female
  Weight: 71.6683 kg

DRUGS (10)
  1. HUMIRA [Suspect]
     Indication: RHEUMATOID ARTHRITIS
     Dosage: 40 MG,  1 IN 2 WK, SUBCUTANEOUS
     Route: 058
     Dates: start: 20050310
  2. METHOTREXATE [Concomitant]
  3. FOLIC ACID [Concomitant]
  4. OESTRANORM [Concomitant]
  5. CYCLOBENZAPRINE HYDROCHLORIDE [Concomitant]
  6. MIRAPEX [Concomitant]
  7. HYDROXYCHLOROQUINE PHOSPHATE [Concomitant]
  8. TRAMADOL HCL [Concomitant]
  9. MELOXICAM [Concomitant]
  10. GABAPENTIN [Concomitant]

REACTIONS (4)
  - CHILLS [None]
  - HEADACHE [None]
  - PAIN [None]
  - PYREXIA [None]
